FAERS Safety Report 23999861 (Version 1)
Quarter: 2024Q2

REPORT INFORMATION
  Report Type: Report from Study
  Country: DE (occurrence: DE)
  Receive Date: 20240621
  Receipt Date: 20240621
  Transmission Date: 20240715
  Serious: Yes (Other)
  Sender: FDA-Public Use
  Company Number: DE-BAYER-2024A085546

PATIENT
  Sex: Male

DRUGS (3)
  1. FINERENONE [Suspect]
     Active Substance: FINERENONE
     Indication: Chronic kidney disease
     Dosage: UNK
     Route: 048
     Dates: start: 2023, end: 2024
  2. METFORMIN [Concomitant]
     Active Substance: METFORMIN HYDROCHLORIDE
  3. DS INSULIN [Concomitant]

REACTIONS (2)
  - Hyperkalaemia [None]
  - Acidosis [None]

NARRATIVE: CASE EVENT DATE: 20230101
